FAERS Safety Report 7012766-5 (Version None)
Quarter: 2010Q3

REPORT INFORMATION
  Report Type: 
  Country: None (occurrence: None)
  Receive Date: 20100924
  Receipt Date: 20100917
  Transmission Date: 20110219
  Serious: Yes (Other)
  Sender: FDA-Public Use
  Company Number: A0881692A

PATIENT
  Age: 53 Year
  Sex: Female

DRUGS (3)
  1. LAMICTAL [Suspect]
     Indication: PRODUCT USED FOR UNKNOWN INDICATION
     Dosage: 200MG PER DAY
     Route: 048
     Dates: start: 20100515
  2. ADVAIR DISKUS 100/50 [Concomitant]
  3. KLONOPIN [Concomitant]

REACTIONS (43)
  - AGITATION [None]
  - ANXIETY [None]
  - BACK PAIN [None]
  - CHEST PAIN [None]
  - CONFUSIONAL STATE [None]
  - COORDINATION ABNORMAL [None]
  - DECREASED APPETITE [None]
  - DIZZINESS [None]
  - DRUG ADMINISTRATION ERROR [None]
  - DRUG DISPENSING ERROR [None]
  - DYSARTHRIA [None]
  - DYSGRAPHIA [None]
  - DYSKINESIA [None]
  - DYSPEPSIA [None]
  - DYSPHAGIA [None]
  - DYSURIA [None]
  - FEELING OF BODY TEMPERATURE CHANGE [None]
  - GLOSSITIS [None]
  - HEADACHE [None]
  - HEART RATE INCREASED [None]
  - HYPOAESTHESIA [None]
  - HYPOAESTHESIA ORAL [None]
  - ILLITERACY [None]
  - INSOMNIA [None]
  - LIP SWELLING [None]
  - LOCAL SWELLING [None]
  - MENTAL IMPAIRMENT [None]
  - MICTURITION URGENCY [None]
  - MUSCULAR WEAKNESS [None]
  - NAUSEA [None]
  - NECK PAIN [None]
  - ORAL HERPES [None]
  - ORAL PAIN [None]
  - PAIN [None]
  - PAROSMIA [None]
  - PHOTOSENSITIVITY REACTION [None]
  - RASH GENERALISED [None]
  - RHINORRHOEA [None]
  - SWELLING [None]
  - SWOLLEN TONGUE [None]
  - TINNITUS [None]
  - TONGUE ULCERATION [None]
  - VOMITING [None]
